FAERS Safety Report 7940647-9 (Version None)
Quarter: 2011Q4

REPORT INFORMATION
  Report Type: 
  Country: None (occurrence: None)
  Receive Date: 20111128
  Receipt Date: 20111121
  Transmission Date: 20120403
  Serious: Yes (Other)
  Sender: FDA-Public Use
  Company Number: US-TEVA-310119USA

PATIENT
  Age: 56 Year
  Sex: Male

DRUGS (4)
  1. VALPROIC ACID [Concomitant]
  2. CLOZAPINE [Suspect]
     Indication: SCHIZOPHRENIA
     Dosage: RANGE 550-100 MG/DAY
  3. CLOZAPINE [Suspect]
  4. HALOPERIDOL [Suspect]

REACTIONS (2)
  - ELECTROCARDIOGRAM QT PROLONGED [None]
  - THROMBOCYTOPENIA [None]
